FAERS Safety Report 11143259 (Version 1)
Quarter: 2015Q2

REPORT INFORMATION
  Report Type: Spontaneous
  Country: US (occurrence: US)
  Receive Date: 20150526
  Receipt Date: 20150526
  Transmission Date: 20150821
  Serious: No
  Sender: FDA-Public Use
  Company Number: US-NOVEN PHARMACEUTICALS, INC.-US2015000080

PATIENT
  Age: 50 Year
  Sex: Female

DRUGS (5)
  1. PROGESTERONE. [Concomitant]
     Active Substance: PROGESTERONE
  2. MINIVELLE [Suspect]
     Active Substance: ESTRADIOL
     Indication: NIGHT SWEATS
     Dosage: 0.05 MG, UNK
     Route: 062
     Dates: start: 201408
  3. SYNTHROID [Concomitant]
     Active Substance: LEVOTHYROXINE SODIUM
     Indication: THYROID DISORDER
     Dosage: 75 UNK, UNK
  4. MINIVELLE [Suspect]
     Active Substance: ESTRADIOL
     Indication: HOT FLUSH
  5. TESTOSTERONE. [Concomitant]
     Active Substance: TESTOSTERONE

REACTIONS (5)
  - Application site mass [Not Recovered/Not Resolved]
  - Rubber sensitivity [Not Recovered/Not Resolved]
  - Skin burning sensation [Unknown]
  - Oral discomfort [Unknown]
  - Pruritus [Unknown]

NARRATIVE: CASE EVENT DATE: 2015
